FAERS Safety Report 9377213 (Version 1)
Quarter: 2013Q3

REPORT INFORMATION
  Report Type: Report from Study
  Country: US (occurrence: US)
  Receive Date: 20130701
  Receipt Date: 20130701
  Transmission Date: 20140515
  Serious: Yes (Other)
  Sender: FDA-Public Use
  Company Number: US-ASTELLAS-2013US006714

PATIENT
  Age: 79 Year
  Sex: 0

DRUGS (1)
  1. ERLOTINIB TABLET [Suspect]
     Indication: NON-SMALL CELL LUNG CANCER METASTATIC
     Dosage: 100 MG, UNKNOWN/D

REACTIONS (3)
  - Incorrect dose administered [Unknown]
  - Gastrointestinal toxicity [Unknown]
  - Rash [Unknown]
